FAERS Safety Report 13192749 (Version 1)
Quarter: 2017Q1

REPORT INFORMATION
  Report Type: Spontaneous
  Country: JP (occurrence: JP)
  Receive Date: 20170207
  Receipt Date: 20170207
  Transmission Date: 20170428
  Serious: Yes (Other)
  Sender: FDA-Public Use
  Company Number: JP-PFIZER INC-2017030094

PATIENT

DRUGS (3)
  1. ALPRAZOLAM. [Suspect]
     Active Substance: ALPRAZOLAM
     Dosage: 0.5 DF, DAILY
     Route: 048
  2. JZOLOFT 25MG [Suspect]
     Active Substance: SERTRALINE HYDROCHLORIDE
     Dosage: 75 MG, DAILY
  3. ATORVASTATIN [Suspect]
     Active Substance: ATORVASTATIN
     Dosage: 1 DF, DAILY
     Route: 048

REACTIONS (1)
  - Bradycardia [Unknown]
